FAERS Safety Report 14303968 (Version 1)
Quarter: 2017Q4

REPORT INFORMATION
  Report Type: Spontaneous
  Country: JP (occurrence: JP)
  Receive Date: 20171219
  Receipt Date: 20171219
  Transmission Date: 20180321
  Serious: Yes (Other)
  Sender: FDA-Public Use
  Company Number: JP-OTSUKA-JP-2012-13532

PATIENT
  Sex: Female

DRUGS (2)
  1. ABILIFY [Suspect]
     Active Substance: ARIPIPRAZOLE
     Dosage: 12 MG, UNK
     Route: 048
  2. ABILIFY [Suspect]
     Active Substance: ARIPIPRAZOLE
     Dosage: 15 MG, UNK
     Route: 048

REACTIONS (3)
  - Hallucination, visual [Unknown]
  - Asthma [Unknown]
  - Hallucination, auditory [Unknown]
